FAERS Safety Report 4697340-8 (Version None)
Quarter: 2005Q2

REPORT INFORMATION
  Report Type: 
  Country: None (occurrence: None)
  Receive Date: 20050620
  Receipt Date: 20050602
  Transmission Date: 20051028
  Serious: Yes (Life-Threatening, Hospitalization)
  Sender: FDA-Public Use
  Company Number: DSA_26568_2005

PATIENT
  Age: 28 Year
  Sex: Male

DRUGS (6)
  1. TEMESTA [Suspect]
     Dosage: 2.5 MG Q DAY
     Dates: start: 20041204
  2. CISORDINOL-ACUTARD [Suspect]
     Dosage: 100 MG ONCE
     Dates: start: 20041203, end: 20041203
  3. CISORDINOL -ACUTARD [Suspect]
     Dosage: 150 MG ONCE
     Dates: start: 20041202, end: 20041202
  4. CISORDINOL-ACUTARD [Suspect]
     Dosage: 200 MG Q DAY
     Dates: start: 20041129
  5. VALPROIC ACID [Concomitant]
  6. LOVENOX [Concomitant]

REACTIONS (7)
  - ANTIPSYCHOTIC DRUG LEVEL INCREASED [None]
  - BACK PAIN [None]
  - C-REACTIVE PROTEIN INCREASED [None]
  - DRUG LEVEL INCREASED [None]
  - PULMONARY EMBOLISM [None]
  - RED BLOOD CELL SEDIMENTATION RATE INCREASED [None]
  - SHOULDER PAIN [None]
